FAERS Safety Report 8812105 (Version 1)
Quarter: 2012Q4

REPORT INFORMATION
  Report Type: 
  Country: US (occurrence: US)
  Receive Date: 20120927
  Receipt Date: 20120927
  Transmission Date: 20130627
  Serious: Yes (Other)
  Sender: FDA-Public Use
  Company Number: CHPA2012US020212

PATIENT
  Age: 67 Year
  Sex: Female

DRUGS (1)
  1. LANOLIN\MINERAL OIL\PETROLATUM, WHITE [Suspect]
     Indication: DRY SKIN
     Dosage: Unk, Unk
     Route: 061
     Dates: start: 1965

REACTIONS (4)
  - Upper limb fracture [Recovered/Resolved]
  - Wrist fracture [Recovered/Resolved]
  - Joint injury [Recovered/Resolved]
  - Fall [Recovered/Resolved]
